FAERS Safety Report 8131994-9 (Version None)
Quarter: 2012Q1

REPORT INFORMATION
  Report Type: 
  Country: None (occurrence: None)
  Receive Date: 20120213
  Receipt Date: 20120206
  Transmission Date: 20120608
  Serious: Yes (Death, Hospitalization)
  Sender: FDA-Public Use
  Company Number: US-CELGENEUS-163-50794-12013025

PATIENT
  Age: 73 Year
  Sex: Female
  Weight: 53.6 kg

DRUGS (29)
  1. ONDANSETRON [Concomitant]
     Indication: PREMEDICATION
     Route: 048
     Dates: start: 20120123
  2. MAGNESIUM SULFATE [Concomitant]
     Dosage: 2 GRAM
     Route: 041
     Dates: start: 20120128, end: 20120128
  3. ATENOLOL [Concomitant]
     Indication: HYPERTENSION
     Dosage: 100 MILLIGRAM
     Route: 048
  4. ONDANSETRON [Concomitant]
     Indication: NAUSEA
     Dosage: 8 MILLIGRAM
     Route: 041
     Dates: start: 20120123
  5. PRIVIGEN [Concomitant]
     Dosage: 20 GRAM
     Route: 041
     Dates: start: 20120127
  6. ENTINOSTAT [Suspect]
     Dosage: 8 MILLIGRAM
     Route: 048
     Dates: start: 20120125, end: 20120127
  7. ONDANSETRON [Concomitant]
     Route: 065
     Dates: start: 20120128
  8. ATIVAN [Concomitant]
     Indication: NAUSEA
     Dosage: .5 MILLIGRAM
     Route: 048
  9. DIPHENHYDRAMINE HCL [Concomitant]
     Dosage: 25 MILLIGRAM
     Route: 048
     Dates: start: 20120127
  10. VIDAZA [Suspect]
     Dosage: 84.5 MILLIGRAM
     Route: 041
     Dates: start: 20120123, end: 20120126
  11. HYDROXYUREA [Concomitant]
     Route: 065
  12. ATIVAN [Concomitant]
     Indication: ANXIETY
  13. PLATELETS [Concomitant]
     Route: 041
     Dates: start: 20120127, end: 20120128
  14. ACETAMINOPHEN [Concomitant]
     Dosage: 650 MILLIGRAM
     Route: 048
     Dates: start: 20120127
  15. SODIUM CHLORIDE [Concomitant]
     Dosage: 1000 MILLILITER
     Route: 041
     Dates: start: 20120127, end: 20120129
  16. CIPROFLOXACIN [Concomitant]
     Indication: INFECTION PROPHYLAXIS
     Dosage: 500 MILLIGRAM
     Route: 048
  17. NORFLOXACIN [Concomitant]
     Dosage: 400 MILLIGRAM
     Route: 048
     Dates: start: 20120127, end: 20120129
  18. PHYTONADIONE [Concomitant]
     Dosage: 5 MILLIGRAM
     Route: 048
     Dates: start: 20120127
  19. ACYCLOVIR [Concomitant]
     Indication: PROPHYLAXIS
     Dosage: 800 MILLIGRAM
     Route: 048
  20. FLUCONAZOLE [Concomitant]
     Indication: PROPHYLAXIS
     Dosage: 400 MILLIGRAM
     Route: 048
     Dates: start: 20120128
  21. AMOXICILLIN [Concomitant]
     Indication: INFECTION PROPHYLAXIS
     Dosage: 500 MILLIGRAM
     Route: 048
     Dates: start: 20120127, end: 20120129
  22. HYDRALAZINE HCL [Concomitant]
     Indication: HYPERTENSION
     Dosage: 25 MILLIGRAM
     Route: 048
     Dates: start: 20120127, end: 20120129
  23. IMMUNE GLOBULIN INTRAVENOUS (HUMAN) [Concomitant]
     Dosage: .4 MILLIGRAM
     Route: 041
  24. ZOFRAN [Concomitant]
     Indication: NAUSEA
     Dosage: 8 MILLIGRAM
     Route: 060
  25. MORPHINE [Concomitant]
     Indication: PAIN
     Dosage: 15 MILLIGRAM
     Route: 048
  26. MORPHINE [Concomitant]
  27. COMPAZINE [Concomitant]
     Indication: NAUSEA
     Dosage: 5 MILLIGRAM
     Route: 048
     Dates: start: 20120123
  28. ELECTROLYTE REPLACEMENT [Concomitant]
     Route: 041
  29. NYSTATIN [Concomitant]
     Dosage: 500000 UNITS
     Route: 048
     Dates: start: 20120127, end: 20120129

REACTIONS (4)
  - LETHARGY [None]
  - DEATH [None]
  - HYPONATRAEMIA [None]
  - HYPOKALAEMIA [None]
